FAERS Safety Report 25720200 (Version 1)
Quarter: 2025Q3

REPORT INFORMATION
  Report Type: Spontaneous
  Country: CH (occurrence: CH)
  Receive Date: 20250825
  Receipt Date: 20250825
  Transmission Date: 20251020
  Serious: Yes (Hospitalization, Other)
  Sender: Unknown Manufacturer
  Company Number: CH-MIRUM PHARMACEUTICALS, INC.-CH-MIR-25-00559

PATIENT

DRUGS (2)
  1. MARALIXIBAT [Suspect]
     Active Substance: MARALIXIBAT
     Indication: Cholangitis sclerosing
     Route: 065
  2. MARALIXIBAT [Suspect]
     Active Substance: MARALIXIBAT
     Indication: Pruritus

REACTIONS (6)
  - Renal impairment [Recovered/Resolved]
  - Respiratory distress [Recovered/Resolved]
  - Cholangitis sclerosing [Not Recovered/Not Resolved]
  - Condition aggravated [Not Recovered/Not Resolved]
  - Off label use [Unknown]
  - Drug ineffective for unapproved indication [Unknown]
